FAERS Safety Report 12439917 (Version 29)
Quarter: 2020Q4

REPORT INFORMATION
  Report Type: Report from Study
  Country: CA (occurrence: CA)
  Receive Date: 20160606
  Receipt Date: 20201118
  Transmission Date: 20210113
  Serious: Yes (Hospitalization, Other)
  Sender: FDA-Public Use
  Company Number: PHHY2015CA029101

PATIENT
  Age: 58 Year
  Sex: Male

DRUGS (6)
  1. SANDOSTATIN [Suspect]
     Active Substance: OCTREOTIDE ACETATE
  2. SANDOSTATIN [Suspect]
     Active Substance: OCTREOTIDE ACETATE
  3. SANDOSTATIN LAR DEPOT [Suspect]
     Active Substance: OCTREOTIDE ACETATE
     Dosage: UNK
     Route: 030
     Dates: start: 20170323
  4. SANDOSTATIN LAR DEPOT [Suspect]
     Active Substance: OCTREOTIDE ACETATE
     Indication: NEUROENDOCRINE TUMOUR
     Dosage: 30 MG, QMO (EVERY 4 WEEKS)
     Route: 030
     Dates: start: 20150306
  5. SANDOSTATIN LAR DEPOT [Suspect]
     Active Substance: OCTREOTIDE ACETATE
     Dosage: 30 MG, QMO
     Route: 030
  6. SANDOSTATIN [Suspect]
     Active Substance: OCTREOTIDE ACETATE
     Indication: NEUROENDOCRINE TUMOUR
     Dosage: 50 MCG (TEST DOSE ONCE)
     Route: 058
     Dates: start: 20150226, end: 20150226

REACTIONS (35)
  - Metastases to liver [Unknown]
  - Vision blurred [Unknown]
  - Blood glucose decreased [Unknown]
  - Renal impairment [Unknown]
  - Gastrointestinal haemorrhage [Recovered/Resolved]
  - Dysuria [Unknown]
  - Incisional hernia [Unknown]
  - Metastases to lymph nodes [Unknown]
  - Heart rate increased [Unknown]
  - Upper respiratory tract infection [Recovering/Resolving]
  - Faeces discoloured [Recovered/Resolved]
  - Needle issue [Unknown]
  - Procedural haemorrhage [Recovered/Resolved]
  - Hypotension [Unknown]
  - Oropharyngeal pain [Recovering/Resolving]
  - Dyspepsia [Unknown]
  - Differential white blood cell count abnormal [Unknown]
  - Platelet count decreased [Unknown]
  - Body temperature decreased [Unknown]
  - Haemoglobin decreased [Unknown]
  - Fatigue [Recovering/Resolving]
  - Weight decreased [Unknown]
  - Blood pressure increased [Unknown]
  - Intestinal obstruction [Unknown]
  - Thrombosis [Unknown]
  - Myalgia [Unknown]
  - Weight increased [Unknown]
  - Malaise [Unknown]
  - Pruritus [Not Recovered/Not Resolved]
  - Faeces discoloured [Not Recovered/Not Resolved]
  - Diarrhoea [Not Recovered/Not Resolved]
  - Lethargy [Unknown]
  - Diabetes mellitus [Unknown]
  - Gout [Recovering/Resolving]
  - Nausea [Unknown]

NARRATIVE: CASE EVENT DATE: 201503
